FAERS Safety Report 9260980 (Version 1)
Quarter: 2013Q2

REPORT INFORMATION
  Report Type: Spontaneous
  Country: US (occurrence: US)
  Receive Date: 20130429
  Receipt Date: 20130429
  Transmission Date: 20140414
  Serious: No
  Sender: FDA-Public Use
  Company Number: US-AMGEN-USASP2012046876

PATIENT
  Age: 39 Year
  Sex: Female
  Weight: 49.5 kg

DRUGS (1)
  1. SENSIPAR [Suspect]
     Indication: HYPERPARATHYROIDISM SECONDARY
     Dosage: 30 MG, QD
     Route: 048
     Dates: start: 20120518, end: 20120616

REACTIONS (4)
  - Blood pressure fluctuation [Recovered/Resolved]
  - Migraine [Recovering/Resolving]
  - Blood parathyroid hormone decreased [Unknown]
  - Blood calcium decreased [Unknown]
